FAERS Safety Report 13395018 (Version 3)
Quarter: 2017Q2

REPORT INFORMATION
  Report Type: Spontaneous
  Country: BE (occurrence: BE)
  Receive Date: 20170403
  Receipt Date: 20170612
  Transmission Date: 20170830
  Serious: Yes (Other)
  Sender: FDA-Public Use
  Company Number: BE-ALEXION-A201703120

PATIENT
  Age: 52 Year
  Sex: Male

DRUGS (3)
  1. SOLIRIS [Suspect]
     Active Substance: ECULIZUMAB
     Indication: OFF LABEL USE
  2. SOLIRIS [Suspect]
     Active Substance: ECULIZUMAB
     Indication: ACUTE KIDNEY INJURY
     Dosage: 900 MG, QW
     Route: 042
     Dates: start: 20170110, end: 20170131
  3. SOLIRIS [Suspect]
     Active Substance: ECULIZUMAB
     Indication: HAEMOLYTIC URAEMIC SYNDROME
     Dosage: 1200 MG, Q2W
     Route: 042
     Dates: start: 20170207

REACTIONS (3)
  - Azotaemia [Unknown]
  - Hypernatraemia [Unknown]
  - Fluid overload [Unknown]
